FAERS Safety Report 5680771-7 (Version None)
Quarter: 2008Q1

REPORT INFORMATION
  Report Type: 
  Country: None (occurrence: None)
  Receive Date: 20080326
  Receipt Date: 20080318
  Transmission Date: 20080703
  Serious: Yes (Death)
  Sender: FDA-Public Use
  Company Number: AU-BOEHRINGER INGELHEIM GMBH, GERMANY-2008-BP-04587AU

PATIENT

DRUGS (1)
  1. MICARDIS HCT [Suspect]
     Route: 048

REACTIONS (1)
  - DEATH [None]
